FAERS Safety Report 6744879-7 (Version None)
Quarter: 2010Q2

REPORT INFORMATION
  Report Type: 
  Country: None (occurrence: None)
  Receive Date: 20100527
  Receipt Date: 20100419
  Transmission Date: 20101027
  Serious: No
  Sender: FDA-Public Use
  Company Number: US-BRISTOL-MYERS SQUIBB COMPANY-15069446

PATIENT
  Age: 5 Decade
  Sex: Female

DRUGS (3)
  1. ONGLYZA [Suspect]
     Indication: TYPE 2 DIABETES MELLITUS
     Dates: start: 20100401, end: 20100401
  2. METFORMIN HCL [Suspect]
     Indication: TYPE 2 DIABETES MELLITUS
  3. BYETTA [Suspect]
     Indication: TYPE 2 DIABETES MELLITUS

REACTIONS (2)
  - NAUSEA [None]
  - VOMITING [None]
